FAERS Safety Report 9715906 (Version 2)
Quarter: 2013Q4

REPORT INFORMATION
  Report Type: Spontaneous
  Country: IT (occurrence: IT)
  Receive Date: 20131127
  Receipt Date: 20131223
  Transmission Date: 20140711
  Serious: Yes (Other)
  Sender: FDA-Public Use
  Company Number: IT-JNJFOC-20131111438

PATIENT
  Sex: Male

DRUGS (2)
  1. QUIXIL [Suspect]
     Indication: FACE LIFT
     Route: 061
     Dates: start: 2010
  2. TISSUCOL KIT 1.0 [Suspect]
     Indication: FACE LIFT
     Route: 061
     Dates: start: 2010

REACTIONS (3)
  - Haematoma [Recovered/Resolved]
  - Hypertension [Unknown]
  - Off label use [Unknown]
